FAERS Safety Report 21569661 (Version 1)
Quarter: 2022Q4

REPORT INFORMATION
  Report Type: Spontaneous
  Country: CN (occurrence: None)
  Receive Date: 20221109
  Receipt Date: 20221109
  Transmission Date: 20230112
  Serious: Yes (Hospitalization, Other)
  Sender: FDA-Public Use
  Company Number: CN-ROCHE-3214935

PATIENT
  Age: 53 Year
  Sex: Female
  Weight: 50.5 kg

DRUGS (10)
  1. HERCEPTIN [Suspect]
     Active Substance: TRASTUZUMAB
     Indication: Breast cancer
     Dosage: 4 MG/KG IN THE FIRST WEEK, THEN 2 MG/KG
     Route: 042
     Dates: start: 20150416, end: 20150924
  2. HERCEPTIN [Suspect]
     Active Substance: TRASTUZUMAB
     Dosage: TRASTUZUMAB + PACLITAXEL
     Route: 042
     Dates: start: 20151016, end: 20151204
  3. HERCEPTIN [Suspect]
     Active Substance: TRASTUZUMAB
     Dosage: TRASTUZUMAB + CAPECITABINE
     Route: 042
     Dates: start: 20151014
  4. KADCYLA [Suspect]
     Active Substance: ADO-TRASTUZUMAB EMTANSINE
     Indication: Breast cancer
     Dosage: DAY1
     Route: 042
     Dates: start: 20210120
  5. PACLITAXEL [Concomitant]
     Active Substance: PACLITAXEL
     Indication: Breast cancer
     Dosage: DAY1, 2
     Route: 042
     Dates: start: 20150416, end: 20150924
  6. PACLITAXEL [Concomitant]
     Active Substance: PACLITAXEL
     Dosage: DAY1, 2
     Route: 042
     Dates: start: 20151016, end: 20151204
  7. CARBOPLATIN [Concomitant]
     Active Substance: CARBOPLATIN
     Indication: Breast cancer
     Dosage: DAY1
     Route: 042
     Dates: start: 20150416, end: 20150924
  8. CAPECITABINE [Concomitant]
     Active Substance: CAPECITABINE
     Indication: Breast cancer
     Dosage: DAY1-14; DOMESTIC DRUG
     Route: 048
     Dates: start: 20151014, end: 20160316
  9. TAMOXIFEN [Concomitant]
     Active Substance: TAMOXIFEN
     Indication: Breast cancer
     Route: 048
     Dates: start: 20160603, end: 202012
  10. TAMOXIFEN [Concomitant]
     Active Substance: TAMOXIFEN
     Dosage: T-DM1 + TAMOXIFEN
     Route: 048
     Dates: start: 20210120

REACTIONS (2)
  - Myelosuppression [Unknown]
  - Platelet count decreased [Not Recovered/Not Resolved]

NARRATIVE: CASE EVENT DATE: 20201221
